FAERS Safety Report 7866029-6 (Version None)
Quarter: 2011Q4

REPORT INFORMATION
  Report Type: 
  Country: None (occurrence: None)
  Receive Date: 20111028
  Receipt Date: 20110411
  Transmission Date: 20120403
  Serious: No
  Sender: FDA-Public Use
  Company Number: US-GLAXOSMITHKLINE-A0922463A

PATIENT
  Age: 76 Year
  Sex: Male

DRUGS (11)
  1. NEXIUM [Concomitant]
  2. LASIX [Concomitant]
  3. COREG [Concomitant]
  4. LISINOPRIL [Concomitant]
  5. ALBUTEROL [Concomitant]
  6. ZOCOR [Concomitant]
  7. VITAMIN-MINERAL COMPOUND TAB [Concomitant]
  8. MAGNESIUM [Concomitant]
  9. ADVAIR DISKUS 100/50 [Suspect]
     Indication: ASTHMA
     Dosage: 1PUFF TWICE PER DAY
     Route: 055
     Dates: start: 20071101
  10. ASPIRIN [Concomitant]
  11. SPIRIVA [Concomitant]

REACTIONS (1)
  - CANDIDIASIS [None]
